FAERS Safety Report 5239604-5 (Version None)
Quarter: 2007Q1

REPORT INFORMATION
  Report Type: 
  Country: None (occurrence: None)
  Receive Date: 20070212
  Receipt Date: 20070127
  Transmission Date: 20070707
  Serious: Yes (Other)
  Sender: FDA-Public Use
  Company Number: 15584

PATIENT
  Age: 33 Year
  Sex: Female

DRUGS (4)
  1. METHOTREXATE [Suspect]
     Indication: ARTHRITIS
     Dosage: 5 MG WEEKLY
  2. METHOTREXATE [Suspect]
     Indication: ARTHRITIS
     Dosage: 7.5 MG WEEKLY
  3. FOLIC ACID [Concomitant]
  4. PREDNISOLONE [Concomitant]

REACTIONS (9)
  - ASTHENIA [None]
  - BONE MARROW FAILURE [None]
  - CHEST DISCOMFORT [None]
  - LEUKAEMOID REACTION [None]
  - MUCOSAL INFLAMMATION [None]
  - NO THERAPEUTIC RESPONSE [None]
  - OEDEMA PERIPHERAL [None]
  - RESPIRATORY DISTRESS [None]
  - TACHYCARDIA [None]
